FAERS Safety Report 8772167 (Version 1)
Quarter: 2012Q4

REPORT INFORMATION
  Report Type: 
  Country: CO (occurrence: CO)
  Receive Date: 20120905
  Receipt Date: 20120905
  Transmission Date: 20130627
  Serious: Yes (Other)
  Sender: FDA-Public Use
  Company Number: CO-PFIZER INC-2012214166

PATIENT
  Age: 38 Year
  Sex: Male

DRUGS (2)
  1. DETRUSITOL SR [Suspect]
     Indication: OFF LABEL USE
     Dosage: 4mg x 30, 1x/day
     Route: 048
     Dates: start: 201202, end: 201205
  2. DETRUSITOL SR [Suspect]
     Indication: PAIN

REACTIONS (2)
  - Prostatic disorder [Recovering/Resolving]
  - Off label use [Unknown]
